FAERS Safety Report 4767029-5 (Version None)
Quarter: 2005Q3

REPORT INFORMATION
  Report Type: 
  Country: None (occurrence: None)
  Receive Date: 20050913
  Receipt Date: 20050902
  Transmission Date: 20060218
  Serious: Yes (Death, Hospitalization)
  Sender: FDA-Public Use
  Company Number: DE-JNJFOC-20050900700

PATIENT
  Age: 70 Year
  Sex: Female

DRUGS (4)
  1. REMICADE [Suspect]
     Route: 042
  2. REMICADE [Suspect]
     Indication: POLYARTHRITIS
     Route: 042
  3. MARCUMAR [Concomitant]
     Route: 065
  4. CORTISONE ACETATE TAB [Concomitant]
     Route: 065

REACTIONS (1)
  - PNEUMOCYSTIS JIROVECI INFECTION [None]
